FAERS Safety Report 25987364 (Version 1)
Quarter: 2025Q4

REPORT INFORMATION
  Report Type: Spontaneous
  Country: GB (occurrence: GB)
  Receive Date: 20251103
  Receipt Date: 20251103
  Transmission Date: 20260118
  Serious: No
  Sender: ALKEM
  Company Number: None

PATIENT
  Sex: Female

DRUGS (2)
  1. IBUPROFEN [Suspect]
     Active Substance: IBUPROFEN
     Indication: Product used for unknown indication
     Dosage: UNK
     Route: 065
  2. Apixoban [Concomitant]
     Indication: Musculoskeletal stiffness
     Dosage: UNK
     Route: 065

REACTIONS (2)
  - Cough [Unknown]
  - Dyspnoea [Unknown]
